FAERS Safety Report 6465897-2 (Version None)
Quarter: 2009Q4

REPORT INFORMATION
  Report Type: 
  Country: None (occurrence: None)
  Receive Date: 20091202
  Receipt Date: 20091123
  Transmission Date: 20100525
  Serious: Yes (Other)
  Sender: FDA-Public Use
  Company Number: US-RB-025958-09

PATIENT
  Age: 75 Year
  Sex: Male

DRUGS (1)
  1. MUCINEX DM [Suspect]
     Dosage: TOOK PRODUCT 2 TIMES IN 2 DAYS
     Route: 048
     Dates: start: 20091101

REACTIONS (1)
  - BLOOD PRESSURE INCREASED [None]
